FAERS Safety Report 16439649 (Version 1)
Quarter: 2019Q3

REPORT INFORMATION
  Report Type: Spontaneous
  Country: US (occurrence: US)
  Receive Date: 20190614
  Receipt Date: 20190614
  Transmission Date: 20191004
  Serious: Yes (Other)
  Sender: FDA-Public Use
  Company Number: None

PATIENT
  Age: 46 Year
  Sex: Female
  Weight: 112.5 kg

DRUGS (7)
  1. ALPRAZOLAM. [Concomitant]
     Active Substance: ALPRAZOLAM
  2. IRON SUPPLEMENT [Concomitant]
     Active Substance: IRON
  3. NUTRILITE VITAMINS [Concomitant]
  4. MARCAINE WITH EPINEPHRINE [Suspect]
     Active Substance: BUPIVACAINE HYDROCHLORIDE\EPINEPHRINE BITARTRATE
     Indication: ANAESTHESIA
     Dates: start: 20190517, end: 20190517
  5. ESCITOLOPRAM [Concomitant]
  6. B12 SUPPLEMENT [Concomitant]
  7. ARMODAFINIL. [Concomitant]
     Active Substance: ARMODAFINIL

REACTIONS (5)
  - Injection site swelling [None]
  - Incision site swelling [None]
  - Post procedural inflammation [None]
  - Blood blister [None]
  - Scab [None]

NARRATIVE: CASE EVENT DATE: 20190517
